FAERS Safety Report 6878371-6 (Version None)
Quarter: 2010Q3

REPORT INFORMATION
  Report Type: 
  Country: None (occurrence: None)
  Receive Date: 20100728
  Receipt Date: 20100714
  Transmission Date: 20110219
  Serious: Yes (Hospitalization)
  Sender: FDA-Public Use
  Company Number: GB-SANOFI-AVENTIS-2010SA038075

PATIENT
  Age: 72 Year
  Sex: Male
  Weight: 98 kg

DRUGS (7)
  1. MULTAQ [Suspect]
     Indication: ATRIAL FIBRILLATION
     Route: 048
     Dates: start: 20100501
  2. MULTAQ [Suspect]
  3. DIGOXIN [Concomitant]
     Indication: ATRIAL FIBRILLATION
     Route: 048
     Dates: start: 20100501
  4. DIGOXIN [Concomitant]
     Route: 048
     Dates: end: 20100501
  5. LISINOPRIL [Concomitant]
     Indication: HYPERTENSION
     Route: 048
  6. WARFARIN [Concomitant]
     Indication: ANTICOAGULANT THERAPY
     Dosage: AS PER INR
     Route: 048
     Dates: start: 20100101
  7. FUROSEMIDE [Concomitant]
     Indication: DIURETIC THERAPY
     Route: 048

REACTIONS (2)
  - DYSPNOEA [None]
  - PULMONARY OEDEMA [None]
